FAERS Safety Report 6634929-0 (Version None)
Quarter: 2010Q1

REPORT INFORMATION
  Report Type: 
  Country: None (occurrence: None)
  Receive Date: 20100315
  Receipt Date: 20100301
  Transmission Date: 20100710
  Serious: Yes (Other)
  Sender: FDA-Public Use
  Company Number: US-ROCHE-689502

PATIENT

DRUGS (7)
  1. BEVACIZUMAB [Suspect]
     Dosage: 30 MIN ON DAY 1 AND 15
     Route: 042
     Dates: start: 20090421
  2. BEVACIZUMAB [Suspect]
     Dosage: COURSE 7, 30 MIN ON DAY 1 AND 15, LAST DOSE PRIOR TO SAE: 13 OCTOBER 2009
     Route: 042
     Dates: start: 20091006
  3. BEVACIZUMAB [Suspect]
     Dosage: COURSE 7, 30 MIN ON DAY 1 AND 15
     Route: 042
  4. TEMSIROLIMUS [Suspect]
     Dosage: 30 MIN ON DAY 1, 8, 15 AND 22
     Route: 042
     Dates: start: 20090421
  5. TEMSIROLIMUS [Suspect]
     Dosage: COURSE 7, 30 MIN ON DAY 1, 8, 15 AND 22, LAST DOSE PRIOR TO SAE: 20 OCTOBER 2009,
     Route: 042
     Dates: start: 20091006
  6. TEMSIROLIMUS [Suspect]
     Dosage: 30 MIN ON DAY 1, 8, 15 AND 22
     Route: 042
  7. LASIX [Suspect]
     Indication: DRUG USE FOR UNKNOWN INDICATION
     Route: 048

REACTIONS (1)
  - GLOMERULAR FILTRATION RATE DECREASED [None]
